FAERS Safety Report 5499662-X (Version None)
Quarter: 2007Q4

REPORT INFORMATION
  Report Type: 
  Country: None (occurrence: None)
  Receive Date: 20071026
  Receipt Date: 20071012
  Transmission Date: 20080405
  Serious: Yes (Other)
  Sender: FDA-Public Use
  Company Number: GR-ROCHE-527204

PATIENT

DRUGS (4)
  1. IBANDRONATE SODIUM [Suspect]
     Dosage: MONTH OR 40 DAY DOSAGES
     Route: 042
  2. PAMIDRONATE DISODIUM [Suspect]
     Route: 042
  3. PAMIDRONATE DISODIUM [Suspect]
     Dosage: MONTH OR 40 DAY DOSAGES
     Route: 042
  4. ZOLEDRONIC ACID [Suspect]
     Dosage: MONTH OR 40 DAY DOSAGES
     Route: 042

REACTIONS (1)
  - OSTEONECROSIS [None]
